FAERS Safety Report 9763619 (Version 1)
Quarter: 2013Q4

REPORT INFORMATION
  Report Type: Spontaneous
  Country: US (occurrence: US)
  Receive Date: 20131216
  Receipt Date: 20131216
  Transmission Date: 20140711
  Serious: No
  Sender: FDA-Public Use
  Company Number: US-BIOGENIDEC-2013BI105311

PATIENT
  Age: 70 Year
  Sex: Female

DRUGS (9)
  1. TECFIDERA [Suspect]
     Indication: MULTIPLE SCLEROSIS
     Route: 048
     Dates: start: 20130731
  2. ALLEGRA [Concomitant]
  3. AMANTADINE [Concomitant]
  4. ATENOLOL [Concomitant]
  5. SOLUMEDROL [Concomitant]
  6. TEGRETOL [Concomitant]
  7. TRIAMTERENE-HCTZ [Concomitant]
  8. VITAMIN C [Concomitant]
  9. VITAMIN D [Concomitant]

REACTIONS (1)
  - Muscular weakness [Unknown]
